FAERS Safety Report 4780477-2 (Version None)
Quarter: 2005Q3

REPORT INFORMATION
  Report Type: 
  Country: None (occurrence: None)
  Receive Date: 20050926
  Receipt Date: 20050912
  Transmission Date: 20060218
  Serious: Yes (Death)
  Sender: FDA-Public Use
  Company Number: 430029N05USA

PATIENT
  Age: 62 Year
  Sex: Male

DRUGS (4)
  1. NOVANTRONE [Suspect]
  2. GEMTUZUMAB OZOGAMICIN [Suspect]
     Indication: ACUTE MYELOID LEUKAEMIA
     Dosage: 10 MG, ONCE, INTRAVENOUS
     Route: 042
     Dates: start: 20041124, end: 20041124
  3. CYTARABINE [Suspect]
  4. ETOPOSIDE                         /00511901/ [Suspect]

REACTIONS (12)
  - BILIRUBIN CONJUGATED INCREASED [None]
  - BLOOD BILIRUBIN INCREASED [None]
  - BLOOD CALCIUM DECREASED [None]
  - DISEASE PROGRESSION [None]
  - DYSPNOEA [None]
  - FLUID OVERLOAD [None]
  - HYPOVOLAEMIA [None]
  - INFECTION [None]
  - PCO2 DECREASED [None]
  - PNEUMONIA [None]
  - RENAL FAILURE ACUTE [None]
  - RESPIRATORY DISTRESS [None]
